FAERS Safety Report 6883689-7 (Version None)
Quarter: 2010Q3

REPORT INFORMATION
  Report Type: 
  Country: None (occurrence: None)
  Receive Date: 20100729
  Receipt Date: 20100716
  Transmission Date: 20110219
  Serious: Yes (Hospitalization)
  Sender: FDA-Public Use
  Company Number: A0867526A

PATIENT
  Age: 47 Year
  Sex: Male
  Weight: 123 kg

DRUGS (9)
  1. AVANDIA [Suspect]
     Indication: DIABETES MELLITUS
     Dosage: 4MG TWICE PER DAY
     Route: 048
     Dates: start: 19990101, end: 20010101
  2. ZESTRIL [Concomitant]
  3. PROZAC [Concomitant]
  4. GLUCOPHAGE [Concomitant]
  5. AMARYL [Concomitant]
  6. VANCENASE [Concomitant]
  7. LASIX [Concomitant]
  8. LIPITOR [Concomitant]
     Dates: end: 20010301
  9. CPAP [Concomitant]

REACTIONS (2)
  - CARDIAC DISORDER [None]
  - CARDIAC FAILURE CONGESTIVE [None]
